FAERS Safety Report 9393050 (Version 1)
Quarter: 2013Q3

REPORT INFORMATION
  Report Type: Spontaneous
  Country: JP (occurrence: JP)
  Receive Date: 20130710
  Receipt Date: 20130710
  Transmission Date: 20140515
  Serious: Yes (Death)
  Sender: FDA-Public Use
  Company Number: JP-ASTELLAS-2013US007245

PATIENT
  Age: 68 Year
  Sex: Male

DRUGS (1)
  1. AMBISOME [Suspect]
     Indication: MENINGITIS CRYPTOCOCCAL
     Dosage: 150 MG, UID/QD
     Route: 042

REACTIONS (1)
  - Renal failure [Fatal]
